FAERS Safety Report 9990053 (Version 1)
Quarter: 2014Q1

REPORT INFORMATION
  Report Type: Report from Study
  Country: US (occurrence: US)
  Receive Date: 20140310
  Receipt Date: 20140310
  Transmission Date: 20141002
  Serious: No
  Sender: FDA-Public Use
  Company Number: US-ABBVIE-13P-163-1137102-00

PATIENT
  Age: 34 Year
  Sex: Male

DRUGS (7)
  1. HUMIRA [Suspect]
     Indication: PSORIATIC ARTHROPATHY
     Dosage: 40MG INITIAL DOSE
     Dates: start: 20130821
  2. KLONOPIN [Concomitant]
     Indication: ANXIETY
  3. MELOXICAM [Concomitant]
     Indication: PRODUCT USED FOR UNKNOWN INDICATION
     Dosage: 15MG DAILY
  4. VIIBRYD [Concomitant]
     Indication: ANTIDEPRESSANT THERAPY
     Dosage: 40MG DAILY
  5. REMERON [Concomitant]
     Indication: INSOMNIA
     Dosage: EVERY EVENING
  6. BENADRYL [Concomitant]
     Indication: INSOMNIA
     Dosage: EVERY EVENING
  7. MULTIVITAMIN [Concomitant]
     Indication: VITAMIN SUPPLEMENTATION

REACTIONS (3)
  - Injection site scar [Not Recovered/Not Resolved]
  - Injection site pain [Not Recovered/Not Resolved]
  - Injection site nodule [Not Recovered/Not Resolved]
